FAERS Safety Report 4513304-9 (Version None)
Quarter: 2004Q4

REPORT INFORMATION
  Report Type: 
  Country: None (occurrence: None)
  Receive Date: 20041130
  Receipt Date: 20040607
  Transmission Date: 20050328
  Serious: Yes (Death)
  Sender: FDA-Public Use
  Company Number: US-BRISTOL-MYERS SQUIBB COMPANY-12608279

PATIENT
  Age: 70 Year
  Sex: Male

DRUGS (13)
  1. ERBITUX [Suspect]
     Indication: COLORECTAL CANCER METASTATIC
     Route: 042
     Dates: start: 20040607, end: 20040607
  2. BENADRYL [Concomitant]
     Indication: PREMEDICATION
     Route: 042
     Dates: start: 20040607, end: 20040607
  3. ADVAIR [Concomitant]
     Dosage: 100/50 MG.
     Route: 048
  4. ALDACTONE [Concomitant]
     Route: 048
  5. ATIVAN [Concomitant]
     Route: 048
  6. CARDURA [Concomitant]
     Route: 048
  7. CLARINEX [Concomitant]
     Route: 048
  8. COUMADIN [Concomitant]
     Route: 048
  9. LASIX [Concomitant]
     Route: 048
  10. LITHIUM [Concomitant]
     Route: 048
  11. NASONEX [Concomitant]
  12. PERCOCET [Concomitant]
     Dosage: 5/325 MG Q4H PRN.
     Route: 048
  13. TOPROL-XL [Concomitant]
     Route: 048

REACTIONS (2)
  - COLON CANCER [None]
  - INFUSION RELATED REACTION [None]
